FAERS Safety Report 16650802 (Version 1)
Quarter: 2020Q3

REPORT INFORMATION
  Report Type: Spontaneous
  Country: US (occurrence: US)
  Receive Date: 20190731
  Receipt Date: 20190731
  Transmission Date: 20201105
  Serious: Yes (Death)
  Sender: FDA-Public Use
  Company Number: US-ASSERTIO THERAPEUTICS, INC.-US-2019DEP000735

PATIENT
  Age: 32 Year
  Sex: Male

DRUGS (4)
  1. AMLODIPINE [Suspect]
     Active Substance: AMLODIPINE BESYLATE
     Indication: PRODUCT USED FOR UNKNOWN INDICATION
     Dosage: UNK
  2. FENTANYL. [Suspect]
     Active Substance: FENTANYL
     Indication: PRODUCT USED FOR UNKNOWN INDICATION
     Dosage: UNK
  3. EPHEDRINE. [Suspect]
     Active Substance: EPHEDRINE
     Indication: PRODUCT USED FOR UNKNOWN INDICATION
     Dosage: UNK
  4. GABAPENTIN. [Suspect]
     Active Substance: GABAPENTIN
     Indication: PRODUCT USED FOR UNKNOWN INDICATION
     Dosage: UNK

REACTIONS (2)
  - Toxicity to various agents [Fatal]
  - Completed suicide [Fatal]
